FAERS Safety Report 17914166 (Version 1)
Quarter: 2020Q2

REPORT INFORMATION
  Report Type: Spontaneous
  Country: FR (occurrence: FR)
  Receive Date: 20200618
  Receipt Date: 20200618
  Transmission Date: 20200714
  Serious: Yes (Hospitalization, Other)
  Sender: FDA-Public Use
  Company Number: FR-VALIDUS PHARMACEUTICALS LLC-FR-2020VAL000480

PATIENT

DRUGS (8)
  1. AMOXICILLIN. [Suspect]
     Active Substance: AMOXICILLIN
     Indication: OTITIS MEDIA ACUTE
     Dosage: 80 MG/KG, QD
     Route: 065
  2. VANCOMYCIN [Suspect]
     Active Substance: VANCOMYCIN
     Indication: MENINGISM
  3. CEFOTAXIME SODIUM [Suspect]
     Active Substance: CEFOTAXIME SODIUM
     Indication: TYMPANIC MEMBRANE PERFORATION
     Dosage: 200 MG/KG, QD
     Route: 065
  4. CEFOTAXIME SODIUM [Suspect]
     Active Substance: CEFOTAXIME SODIUM
     Indication: MENINGISM
  5. VANCOMYCIN [Suspect]
     Active Substance: VANCOMYCIN
     Indication: TYMPANIC MEMBRANE PERFORATION
     Dosage: 40 MG/KG, QD
     Route: 065
  6. VANCOMYCIN [Suspect]
     Active Substance: VANCOMYCIN
     Indication: OTITIS MEDIA ACUTE
     Dosage: 60 MG/KG, QD, DOSE WAS INCREASED ON DAY 3
     Route: 065
  7. CEFOTAXIME SODIUM [Suspect]
     Active Substance: CEFOTAXIME SODIUM
     Indication: OTITIS MEDIA ACUTE
     Dosage: 300 MG/KG, QD, DOSE WAS INCREASED ON DAY 3
     Route: 065
  8. AMOXICILLIN. [Suspect]
     Active Substance: AMOXICILLIN
     Indication: TYMPANIC MEMBRANE PERFORATION

REACTIONS (2)
  - Pyrexia [Recovered/Resolved]
  - Leukostasis syndrome [Unknown]
